FAERS Safety Report 7652700-8 (Version None)
Quarter: 2011Q3

REPORT INFORMATION
  Report Type: 
  Country: None (occurrence: None)
  Receive Date: 20110803
  Receipt Date: 20110721
  Transmission Date: 20111222
  Serious: Yes (Other)
  Sender: FDA-Public Use
  Company Number: US-JNJFOC-20110709662

PATIENT
  Sex: Male
  Weight: 50 kg

DRUGS (7)
  1. ATIVAN [Concomitant]
     Route: 065
  2. CISAPRIDE [Suspect]
     Indication: GASTROOESOPHAGEAL REFLUX DISEASE
     Route: 048
  3. SINGULAIR [Concomitant]
     Route: 065
  4. DIGOXIN [Concomitant]
     Route: 065
  5. CISAPRIDE [Suspect]
     Indication: GASTROINTESTINAL HYPOMOTILITY
     Route: 048
  6. FLONASE [Concomitant]
     Route: 065
  7. MULTI-VITAMINS [Concomitant]
     Route: 065

REACTIONS (1)
  - ELECTROCARDIOGRAM QT PROLONGED [None]
